FAERS Safety Report 5456071-7 (Version None)
Quarter: 2007Q3

REPORT INFORMATION
  Report Type: 
  Country: None (occurrence: None)
  Receive Date: 20070918
  Receipt Date: 20061110
  Transmission Date: 20080115
  Serious: No
  Sender: FDA-Public Use
  Company Number: US-ASTRAZENECA-2006UW23533

PATIENT
  Age: 46 Year
  Sex: Female
  Weight: 82.6 kg

DRUGS (7)
  1. SEROQUEL [Suspect]
     Indication: BIPOLAR DISORDER
     Route: 048
  2. KLONOPIN [Concomitant]
     Dates: start: 20060901
  3. DEPAKOTE [Concomitant]
     Dates: start: 20061108
  4. DEPAKOTE [Concomitant]
     Dates: start: 19980101, end: 20061001
  5. XANAX [Concomitant]
  6. PROPRANOLOL [Concomitant]
  7. LEVOTHYROXINE SODIUM [Concomitant]

REACTIONS (1)
  - ALOPECIA [None]
